FAERS Safety Report 10914404 (Version 2)
Quarter: 2015Q1

REPORT INFORMATION
  Report Type: Spontaneous
  Country: US (occurrence: US)
  Receive Date: 20150313
  Receipt Date: 20150313
  Transmission Date: 20150721
  Serious: Yes (Hospitalization, Other)
  Sender: FDA-Public Use
  Company Number: US-GLAXOSMITHKLINE-US2015028273

PATIENT
  Sex: Female

DRUGS (11)
  1. FLUARIX SOLUTION FOR INJECTION [Concomitant]
  2. FUROSEMIDE. [Concomitant]
     Active Substance: FUROSEMIDE
  3. LOVAZA [Suspect]
     Active Substance: OMEGA-3-ACID ETHYL ESTERS
     Indication: PAIN
     Dosage: 1 G, QD
     Route: 048
  4. NASONEX [Concomitant]
     Active Substance: MOMETASONE FUROATE
  5. CLONIDINE. [Concomitant]
     Active Substance: CLONIDINE
  6. LEVOTHYROXINE [Concomitant]
     Active Substance: LEVOTHYROXINE
  7. SPIRONOLACTONE. [Concomitant]
     Active Substance: SPIRONOLACTONE
  8. LOSARTAN [Suspect]
     Active Substance: LOSARTAN
     Indication: PRODUCT USED FOR UNKNOWN INDICATION
     Dosage: UNK, U
     Route: 065
  9. SIMVASTATIN. [Concomitant]
     Active Substance: SIMVASTATIN
  10. VITAMIN B12 [Concomitant]
     Active Substance: CYANOCOBALAMIN
  11. BIOTIN [Concomitant]
     Active Substance: BIOTIN

REACTIONS (25)
  - Blood pressure increased [Recovered/Resolved]
  - Aphasia [Recovered/Resolved]
  - Influenza [Recovered/Resolved]
  - Infection [Recovered/Resolved]
  - Weight increased [Unknown]
  - Back disorder [Unknown]
  - Therapy cessation [Unknown]
  - Pruritus [Recovered/Resolved]
  - Off label use [Unknown]
  - Gait disturbance [Unknown]
  - Gout [Unknown]
  - Nerve compression [Not Recovered/Not Resolved]
  - Therapeutic response unexpected [Unknown]
  - Apparent death [Recovered/Resolved]
  - Musculoskeletal disorder [Not Recovered/Not Resolved]
  - Colon neoplasm [Not Recovered/Not Resolved]
  - Tumour haemorrhage [Recovered/Resolved]
  - Neoplasm malignant [Unknown]
  - Hip arthroplasty [Recovered/Resolved]
  - Coronary artery bypass [Recovered/Resolved]
  - Staphylococcal infection [Recovered/Resolved]
  - Genital blister [Unknown]
  - Cardiac valve disease [Unknown]
  - Lymphoedema [Not Recovered/Not Resolved]
  - Arthritis [Not Recovered/Not Resolved]

NARRATIVE: CASE EVENT DATE: 2013
